FAERS Safety Report 25877449 (Version 1)
Quarter: 2025Q4

REPORT INFORMATION
  Report Type: Spontaneous
  Country: US (occurrence: US)
  Receive Date: 20251003
  Receipt Date: 20251003
  Transmission Date: 20260118
  Serious: Yes (Other)
  Sender: APOTEX
  Company Number: US-APOTEX-2025AP030703

PATIENT
  Age: 58 Year
  Sex: Male

DRUGS (25)
  1. DULOXETINE [Suspect]
     Active Substance: DULOXETINE
     Indication: Oropharyngeal pain
     Dosage: UNK
     Route: 048
  2. DULOXETINE [Suspect]
     Active Substance: DULOXETINE
     Indication: Neck pain
  3. DULOXETINE [Suspect]
     Active Substance: DULOXETINE
     Indication: Pain in jaw
  4. DULOXETINE [Suspect]
     Active Substance: DULOXETINE
     Indication: Ear pain
  5. DULOXETINE [Suspect]
     Active Substance: DULOXETINE
     Indication: Glossodynia
  6. CARBAMAZEPINE [Suspect]
     Active Substance: CARBAMAZEPINE
     Indication: Oropharyngeal pain
     Dosage: UNK
     Route: 048
  7. CARBAMAZEPINE [Suspect]
     Active Substance: CARBAMAZEPINE
     Indication: Neck pain
  8. CARBAMAZEPINE [Suspect]
     Active Substance: CARBAMAZEPINE
     Indication: Pain in jaw
  9. CARBAMAZEPINE [Suspect]
     Active Substance: CARBAMAZEPINE
     Indication: Ear pain
  10. CARBAMAZEPINE [Suspect]
     Active Substance: CARBAMAZEPINE
     Indication: Glossodynia
  11. GABAPENTIN [Suspect]
     Active Substance: GABAPENTIN
     Indication: Oropharyngeal pain
     Dosage: UNK
     Route: 048
  12. GABAPENTIN [Suspect]
     Active Substance: GABAPENTIN
     Indication: Neck pain
  13. GABAPENTIN [Suspect]
     Active Substance: GABAPENTIN
     Indication: Pain in jaw
  14. GABAPENTIN [Suspect]
     Active Substance: GABAPENTIN
     Indication: Ear pain
  15. GABAPENTIN [Suspect]
     Active Substance: GABAPENTIN
     Indication: Glossodynia
  16. PREGABALIN [Suspect]
     Active Substance: PREGABALIN
     Indication: Oropharyngeal pain
     Dosage: UNK
     Route: 048
  17. PREGABALIN [Suspect]
     Active Substance: PREGABALIN
     Indication: Neck pain
  18. PREGABALIN [Suspect]
     Active Substance: PREGABALIN
     Indication: Pain in jaw
  19. PREGABALIN [Suspect]
     Active Substance: PREGABALIN
     Indication: Ear pain
  20. PREGABALIN [Suspect]
     Active Substance: PREGABALIN
     Indication: Glossodynia
  21. AMITRIPTYLINE [Suspect]
     Active Substance: AMITRIPTYLINE
     Indication: Oropharyngeal pain
     Dosage: UNK
     Route: 048
  22. AMITRIPTYLINE [Suspect]
     Active Substance: AMITRIPTYLINE
     Indication: Neck pain
  23. AMITRIPTYLINE [Suspect]
     Active Substance: AMITRIPTYLINE
     Indication: Pain in jaw
  24. AMITRIPTYLINE [Suspect]
     Active Substance: AMITRIPTYLINE
     Indication: Ear pain
  25. AMITRIPTYLINE [Suspect]
     Active Substance: AMITRIPTYLINE
     Indication: Glossodynia

REACTIONS (7)
  - Erectile dysfunction [Unknown]
  - Urticaria [Unknown]
  - Pruritus [Unknown]
  - Malaise [Unknown]
  - Dysuria [Unknown]
  - Therapy partial responder [Unknown]
  - Drug ineffective [Unknown]
